FAERS Safety Report 22527676 (Version 1)
Quarter: 2023Q2

REPORT INFORMATION
  Report Type: Report from Study
  Country: EG (occurrence: EG)
  Receive Date: 20230606
  Receipt Date: 20230606
  Transmission Date: 20230722
  Serious: Yes (Other)
  Sender: FDA-Public Use
  Company Number: EG-002147023-NVSC2023EG120130

PATIENT
  Sex: Male

DRUGS (1)
  1. LEQVIO [Suspect]
     Active Substance: INCLISIRAN SODIUM
     Indication: Hypercholesterolaemia
     Dosage: UNK (ONE DOSE EVERY 6 MONTHS)
     Route: 058

REACTIONS (4)
  - Fatigue [Recovered/Resolved]
  - Blood cholesterol increased [Recovering/Resolving]
  - Hyperhidrosis [Recovered/Resolved]
  - Drug ineffective [Unknown]
